FAERS Safety Report 18208707 (Version 1)
Quarter: 2020Q3

REPORT INFORMATION
  Report Type: Spontaneous
  Country: US (occurrence: US)
  Receive Date: 20200828
  Receipt Date: 20200828
  Transmission Date: 20201103
  Serious: Yes (Other)
  Sender: FDA-Public Use
  Company Number: US-PURDUE-USA-2020-0163506

PATIENT

DRUGS (3)
  1. OXYCODONE/ ACETAMINOPHEN TABLETS [Suspect]
     Active Substance: ACETAMINOPHEN\OXYCODONE HYDROCHLORIDE
     Indication: BACK PAIN
     Dosage: UNK
     Route: 048
  2. TRAMADOL. [Suspect]
     Active Substance: TRAMADOL
     Indication: BACK PAIN
     Dosage: UNK
     Route: 065
  3. OXYCODONE HYDROCHLORIDE (SIMILAR TO NDA 22?272) [Suspect]
     Active Substance: OXYCODONE HYDROCHLORIDE
     Indication: BACK PAIN
     Dosage: UNK
     Route: 048

REACTIONS (12)
  - Ageusia [Unknown]
  - Nausea [Unknown]
  - Drug dependence [Unknown]
  - Abulia [Unknown]
  - Drug withdrawal syndrome [Unknown]
  - Tooth loss [Unknown]
  - Aggression [Unknown]
  - General physical health deterioration [Unknown]
  - Euphoric mood [Unknown]
  - Unevaluable event [Unknown]
  - Weight decreased [Unknown]
  - Disturbance in attention [Unknown]
